FAERS Safety Report 19279436 (Version 3)
Quarter: 2021Q3

REPORT INFORMATION
  Report Type: Report from Study
  Country: IT (occurrence: IT)
  Receive Date: 20210520
  Receipt Date: 20210825
  Transmission Date: 20211014
  Serious: Yes (Hospitalization)
  Sender: FDA-Public Use
  Company Number: IT-MYLANLABS-2021M1029153

PATIENT
  Age: 62 Year
  Sex: Female
  Weight: 62 kg

DRUGS (6)
  1. EXEMESTANE. [Suspect]
     Active Substance: EXEMESTANE
     Indication: HER2 POSITIVE BREAST CANCER
     Dosage: 25 MILLIGRAM, QD
     Route: 048
     Dates: start: 20190802
  2. TRASTUZUMAB. [Suspect]
     Active Substance: TRASTUZUMAB
     Indication: HER2 POSITIVE BREAST CANCER
     Dosage: 372 MILLIGRAM, Q3W
     Route: 042
     Dates: start: 20190418, end: 20190926
  3. EXEMESTANE. [Suspect]
     Active Substance: EXEMESTANE
     Dosage: 25 MILLIGRAM, QD
     Route: 048
     Dates: start: 20190801, end: 20201021
  4. PERTUZUMAB. [Suspect]
     Active Substance: PERTUZUMAB
     Indication: HER2 POSITIVE BREAST CANCER
     Dosage: 420 MILLIGRAM, Q3W
     Route: 042
     Dates: start: 20190418, end: 20190926
  5. DOCETAXEL. [Suspect]
     Active Substance: DOCETAXEL
     Indication: HER2 POSITIVE BREAST CANCER
     Dosage: 100 MILLIGRAM, Q3W (LAST DOSE 11/JUL/2019)
     Route: 042
     Dates: start: 20190328
  6. DOCETAXEL. [Suspect]
     Active Substance: DOCETAXEL
     Dosage: LAST DOSE 11/JUL/2019
     Route: 042
     Dates: start: 20190418, end: 20190711

REACTIONS (1)
  - Left ventricular dysfunction [Recovered/Resolved with Sequelae]

NARRATIVE: CASE EVENT DATE: 20190926
